FAERS Safety Report 9955298 (Version 2)
Quarter: 2014Q1

REPORT INFORMATION
  Report Type: Report from Study
  Country: US (occurrence: US)
  Receive Date: 20140304
  Receipt Date: 20140304
  Transmission Date: 20141002
  Serious: Yes (Other)
  Sender: FDA-Public Use
  Company Number: US-ABBVIE-09P-163-0503368-00

PATIENT
  Sex: Female
  Weight: 74.91 kg

DRUGS (8)
  1. HUMIRA 40 MG/0.8 ML PEN [Suspect]
     Indication: RHEUMATOID ARTHRITIS
     Route: 058
     Dates: start: 2008, end: 200812
  2. HUMIRA 40 MG/0.8 ML PEN [Suspect]
     Dosage: SYRINGE
     Route: 058
     Dates: start: 2007, end: 2008
  3. HUMIRA 40 MG/0.8 ML PEN [Suspect]
  4. ESTROGEN [Suspect]
     Indication: PRODUCT USED FOR UNKNOWN INDICATION
     Dates: start: 2007, end: 2008
  5. LISINOPRIL [Concomitant]
     Indication: PRODUCT USED FOR UNKNOWN INDICATION
  6. BETAXOLOL [Concomitant]
     Indication: PRODUCT USED FOR UNKNOWN INDICATION
  7. LASIX [Concomitant]
     Indication: PRODUCT USED FOR UNKNOWN INDICATION
  8. ZOCOR [Concomitant]
     Indication: PRODUCT USED FOR UNKNOWN INDICATION

REACTIONS (6)
  - Breast cancer [Recovered/Resolved]
  - Breast calcifications [Recovered/Resolved]
  - Thermal burn [Recovering/Resolving]
  - Procedural complication [Recovering/Resolving]
  - Wound [Recovering/Resolving]
  - Arthritis [Not Recovered/Not Resolved]
